FAERS Safety Report 8121798-5 (Version None)
Quarter: 2012Q1

REPORT INFORMATION
  Report Type: 
  Country: None (occurrence: None)
  Receive Date: 20120208
  Receipt Date: 20120201
  Transmission Date: 20120608
  Serious: Yes (Hospitalization)
  Sender: FDA-Public Use
  Company Number: US-TEVA-166256USA

PATIENT
  Sex: Male
  Weight: 55.3 kg

DRUGS (19)
  1. OXALIPLATIN [Suspect]
     Indication: COLORECTAL CANCER METASTATIC
     Dosage: 10.3571 MILLIGRAM;
     Route: 042
     Dates: start: 20070905, end: 20071029
  2. FLUTICASONE PROPIONATE/SALMETEROL [Concomitant]
     Dates: start: 20050101
  3. TOCOPHEROL CONCENTRATE CAP [Concomitant]
     Route: 048
     Dates: start: 20020101
  4. HYDROCODONE [Concomitant]
     Route: 048
     Dates: start: 20070906
  5. POTASSIUM [Concomitant]
     Route: 048
     Dates: start: 20060801
  6. LEUCOVORIN CALCIUM [Suspect]
     Indication: COLORECTAL CANCER METASTATIC
     Dosage: 48.5714 MILLIGRAM;
     Route: 041
     Dates: start: 20070905, end: 20071029
  7. AG-013, 736 (AXITINIB) [Suspect]
     Indication: COLORECTAL CANCER METASTATIC
     Dosage: 10 MILLIGRAM;
     Route: 048
     Dates: start: 20070908, end: 20071111
  8. CLONAZEPAM [Concomitant]
     Route: 048
     Dates: start: 20070401
  9. LOPERAMIDE HCL [Concomitant]
     Route: 048
     Dates: start: 20070925
  10. FLUOROURACIL [Suspect]
     Indication: COLORECTAL CANCER METASTATIC
     Dosage: 227.1429 MILLIGRAM;
     Route: 041
     Dates: start: 20071029, end: 20071031
  11. RETINOL [Concomitant]
     Route: 048
     Dates: start: 20020101
  12. FLUOROURACIL [Suspect]
     Dosage: 48.5714 MILLIGRAM; BOLUS
     Route: 042
     Dates: start: 20071029, end: 20071029
  13. FAMOTIDINE [Concomitant]
     Route: 048
     Dates: start: 20070828
  14. BUDESONIDE [Concomitant]
     Route: 045
     Dates: start: 20020101
  15. CYANOCOBALAMIN [Concomitant]
     Route: 048
     Dates: start: 20020101
  16. PROCHLORPERAZINE EDISYLATE [Concomitant]
     Route: 048
     Dates: start: 20070901
  17. HYDROXYZINE HCL [Concomitant]
     Route: 048
     Dates: start: 20060101
  18. OXYCODONE HCL [Concomitant]
     Route: 048
     Dates: start: 20060101
  19. CALCIUM WITH VITAMIN D [Concomitant]
     Route: 048
     Dates: start: 20020101

REACTIONS (1)
  - HEMIPARESIS [None]
